FAERS Safety Report 6851875-8 (Version None)
Quarter: 2010Q3

REPORT INFORMATION
  Report Type: 
  Country: None (occurrence: None)
  Receive Date: 20100717
  Receipt Date: 20071030
  Transmission Date: 20110219
  Serious: No
  Sender: FDA-Public Use
  Company Number: US-PFIZER INC-2007093449

PATIENT
  Sex: Male
  Weight: 85.9 kg

DRUGS (17)
  1. CHANTIX [Suspect]
     Indication: SMOKING CESSATION THERAPY
     Route: 048
     Dates: start: 20071026
  2. ACETYLSALICYLIC ACID [Concomitant]
  3. NIFEDIPINE [Concomitant]
  4. BENZTROPINE MESYLATE [Concomitant]
  5. ARICEPT [Concomitant]
  6. CITALOPRAM HYDROBROMIDE [Concomitant]
  7. ATENOLOL [Concomitant]
  8. FUROSEMIDE [Concomitant]
  9. QUINAPRIL [Concomitant]
  10. POTASSIUM CHLORIDE [Concomitant]
  11. RANITIDINE [Concomitant]
  12. PLAVIX [Concomitant]
  13. LOVASTATIN [Concomitant]
  14. ZYPREXA [Concomitant]
  15. OTHER DERMATOLOGICAL PREPARATIONS [Concomitant]
  16. ALBUTEROL [Concomitant]
  17. LAXATIVES [Concomitant]

REACTIONS (1)
  - NAUSEA [None]
